FAERS Safety Report 14313554 (Version 4)
Quarter: 2019Q4

REPORT INFORMATION
  Report Type: Report from Study
  Country: CA (occurrence: CA)
  Receive Date: 20171221
  Receipt Date: 20191128
  Transmission Date: 20200122
  Serious: Yes (Other)
  Sender: FDA-Public Use
  Company Number: CA-PFIZER INC-2017011440

PATIENT
  Age: 56 Year
  Sex: Male

DRUGS (8)
  1. VITAMIN B12 [Concomitant]
     Active Substance: CYANOCOBALAMIN
     Dosage: UNK
     Dates: start: 200601
  2. VIT D [Concomitant]
     Active Substance: VITAMIN D NOS
     Dosage: 1000 INTERNATIONAL UNIT, 5/WEEK
     Dates: start: 201106
  3. ENTYVIO [Suspect]
     Active Substance: VEDOLIZUMAB
     Dosage: 300 MILLIGRAM
     Route: 042
  4. IRON [Concomitant]
     Active Substance: IRON
     Dosage: 300 MG, TID
     Dates: start: 201106
  5. PANTOLOC [Suspect]
     Active Substance: PANTOPRAZOLE SODIUM
     Dosage: 40 MG, QD
     Route: 065
     Dates: start: 201002
  6. ENTYVIO [Suspect]
     Active Substance: VEDOLIZUMAB
     Indication: CROHN^S DISEASE
     Dosage: 300 MG, UNK
     Route: 042
     Dates: start: 20161220
  7. ENTYVIO [Suspect]
     Active Substance: VEDOLIZUMAB
     Dosage: 300 MILLIGRAM
     Route: 042
  8. FOLIC ACID. [Concomitant]
     Active Substance: FOLIC ACID
     Dosage: 5 MG, QD
     Dates: start: 201303

REACTIONS (14)
  - Abdominal pain upper [Recovered/Resolved]
  - Sputum discoloured [Unknown]
  - Drug ineffective [Unknown]
  - Fatigue [Recovered/Resolved]
  - Cough [Unknown]
  - Nasopharyngitis [Unknown]
  - Insomnia [Unknown]
  - Arthralgia [Not Recovered/Not Resolved]
  - Decreased appetite [Recovered/Resolved]
  - Haematochezia [Unknown]
  - Mucous stools [Unknown]
  - Decreased appetite [Recovered/Resolved]
  - Diarrhoea [Recovered/Resolved]
  - Diarrhoea [Unknown]

NARRATIVE: CASE EVENT DATE: 20161220
